FAERS Safety Report 4869012-8 (Version None)
Quarter: 2005Q4

REPORT INFORMATION
  Report Type: 
  Country: None (occurrence: None)
  Receive Date: 20051223
  Receipt Date: 20051203
  Transmission Date: 20060501
  Serious: Yes (Other)
  Sender: FDA-Public Use
  Company Number: CA200511002750

PATIENT
  Age: 74 Year
  Sex: Female

DRUGS (13)
  1. FORTEO [Suspect]
     Indication: OSTEOPOROSIS
     Dosage: 20 UG, DAILY (1/D), UNK
     Dates: start: 20051011
  2. FORTEO [Concomitant]
     Indication: OSTEOPOROSIS
     Route: 058
  3. TIAZAC [Concomitant]
  4. PREDNISONE [Concomitant]
  5. PLAQUINOL (HYDROXYCHLOROQUINE SULFATE) [Concomitant]
  6. PARIET                          /JPN/(RABEPRAZOLE SODIUM) [Concomitant]
  7. PEPCID [Concomitant]
  8. MITILLUM (DOMPERIDONE) [Concomitant]
  9. PLAVIX [Concomitant]
  10. EMTEC-30                 (CODEINE PHOSPHATE, PARACETAMOL) [Concomitant]
  11. ATIVAN [Concomitant]
  12. CIPRO [Concomitant]
  13. NITRO-SPRAY                     (ISOSORBIDE DINITRATE) SPRAY [Concomitant]

REACTIONS (6)
  - ASTHENIA [None]
  - HEADACHE [None]
  - HEART RATE INCREASED [None]
  - HEMIPARESIS [None]
  - OESOPHAGEAL SPASM [None]
  - TRANSIENT ISCHAEMIC ATTACK [None]
